FAERS Safety Report 15046439 (Version 3)
Quarter: 2018Q3

REPORT INFORMATION
  Report Type: Spontaneous
  Country: US (occurrence: US)
  Receive Date: 20180621
  Receipt Date: 20180813
  Transmission Date: 20181010
  Serious: Yes (Life-Threatening, Hospitalization)
  Sender: FDA-Public Use
  Company Number: US-ACTELION-A-US2018-173940

PATIENT
  Age: 6 Month
  Sex: Male

DRUGS (7)
  1. LASIX [Concomitant]
     Active Substance: FUROSEMIDE
     Dosage: 5 MG, BID
     Dates: start: 201805
  2. TRACLEER [Suspect]
     Active Substance: BOSENTAN
     Indication: PULMONARY ARTERIAL HYPERTENSION
     Dosage: 8 MG, BID
     Route: 048
     Dates: start: 20180503, end: 201806
  3. VITAMIN D [Concomitant]
     Active Substance: CHOLECALCIFEROL
     Dosage: 200 U, QD
     Dates: start: 201805
  4. FERROUS SULFATE. [Concomitant]
     Active Substance: FERROUS SULFATE
     Dosage: 15 MG, BID
     Dates: start: 201805
  5. TRACLEER [Suspect]
     Active Substance: BOSENTAN
     Dosage: 16 MG, BID
     Route: 049
     Dates: start: 20180517, end: 20180802
  6. EPOGEN [Concomitant]
     Active Substance: ERYTHROPOIETIN
     Dosage: 500 U, M W F
     Dates: start: 201805
  7. PREVACID [Concomitant]
     Active Substance: LANSOPRAZOLE
     Dosage: 5 MG, BID
     Dates: start: 201805

REACTIONS (7)
  - Oxygen saturation decreased [Unknown]
  - Pneumonia aspiration [Unknown]
  - Chromaturia [Unknown]
  - Bradycardia [Unknown]
  - Agitation [Unknown]
  - Respiratory arrest [Recovered/Resolved]
  - Hypoxia [Recovered/Resolved]

NARRATIVE: CASE EVENT DATE: 20180627
